FAERS Safety Report 6253751-0 (Version None)
Quarter: 2009Q2

REPORT INFORMATION
  Report Type: 
  Country: None (occurrence: None)
  Receive Date: 20090630
  Receipt Date: 20090615
  Transmission Date: 20091009
  Serious: Yes (Death, Other)
  Sender: FDA-Public Use
  Company Number: MC200900122

PATIENT
  Age: 44 Year
  Sex: Male

DRUGS (6)
  1. CLEVIPREX         (CLEVIDIPINE BUTYRATE) [Suspect]
     Indication: HYPERTENSION
     Dosage: 1-2 MG, HR, INTRAVENOUS; 4 MG, HR, INTRAVENOUS, 1-2 MG, HR
     Route: 042
     Dates: start: 20090301, end: 20090301
  2. CLEVIPREX         (CLEVIDIPINE BUTYRATE) [Suspect]
     Indication: HYPERTENSION
     Dosage: 1-2 MG, HR, INTRAVENOUS; 4 MG, HR, INTRAVENOUS, 1-2 MG, HR
     Route: 042
     Dates: start: 20090313, end: 20090313
  3. CLEVIPREX         (CLEVIDIPINE BUTYRATE) [Suspect]
     Indication: HYPERTENSION
     Dosage: 1-2 MG, HR, INTRAVENOUS; 4 MG, HR, INTRAVENOUS, 1-2 MG, HR
     Route: 042
     Dates: start: 20090301
  4. HYDRALAZINE HCL [Suspect]
     Indication: HYPERTENSION
     Dosage: 10 MG, SINGLE, INTRAVENOUS
     Route: 042
     Dates: start: 20090313, end: 20090313
  5. NITROGLYCERIN [Suspect]
     Indication: HYPERTENSION
     Dosage: 100 UG,
     Dates: start: 20090101, end: 20090101
  6. DOPAMINE HCL [Concomitant]

REACTIONS (6)
  - CARDIAC ARREST [None]
  - CEREBRAL INFARCTION [None]
  - HYPERTENSIVE CRISIS [None]
  - HYPOTENSION [None]
  - MENTAL STATUS CHANGES [None]
  - PUPIL FIXED [None]
